FAERS Safety Report 16957727 (Version 5)
Quarter: 2021Q4

REPORT INFORMATION
  Report Type: Spontaneous
  Country: US (occurrence: US)
  Receive Date: 20191024
  Receipt Date: 20211230
  Transmission Date: 20220303
  Serious: Yes (Hospitalization)
  Sender: FDA-Public Use
  Company Number: US-VERTEX PHARMACEUTICALS-2019-010055

PATIENT
  Sex: Female
  Weight: 17 kg

DRUGS (9)
  1. ORKAMBI [Suspect]
     Active Substance: IVACAFTOR\LUMACAFTOR
     Indication: Cystic fibrosis
     Dosage: (LUMACAFTOR150 MG/ IVACAFTOR 188 MG) GRANULES
     Route: 048
     Dates: start: 20180911
  2. ORKAMBI [Suspect]
     Active Substance: IVACAFTOR\LUMACAFTOR
     Dosage: 1 PACKET GRANULES (150MG/188 MG), BID (REGULAR)
     Route: 048
     Dates: start: 2019
  3. CEFAZOLIN [Suspect]
     Active Substance: CEFAZOLIN
     Indication: Infective pulmonary exacerbation of cystic fibrosis
     Dosage: UNK
     Route: 042
     Dates: start: 2019
  4. CREON [Concomitant]
     Active Substance: PANCRELIPASE AMYLASE\PANCRELIPASE LIPASE\PANCRELIPASE PROTEASE
     Dosage: UNK
  5. PENICILLIN G [Concomitant]
     Active Substance: PENICILLIN G
     Dosage: UNK
  6. TOBRAMYCIN [Concomitant]
     Active Substance: TOBRAMYCIN
     Dosage: UNK
  7. AZITHROMYCIN [Concomitant]
     Active Substance: AZITHROMYCIN
     Dosage: UNK
  8. PRILOSEC [Concomitant]
     Active Substance: OMEPRAZOLE MAGNESIUM
     Dosage: UNK
  9. SODIUM CHLORIDE [Concomitant]
     Active Substance: SODIUM CHLORIDE
     Dosage: UNK

REACTIONS (6)
  - Infective pulmonary exacerbation of cystic fibrosis [Recovered/Resolved]
  - Respiratory syncytial virus infection [Unknown]
  - Pneumonia [Unknown]
  - Staphylococcal infection [Unknown]
  - Stenotrophomonas infection [Unknown]
  - Rash [Unknown]

NARRATIVE: CASE EVENT DATE: 20190101
